FAERS Safety Report 15255708 (Version 6)
Quarter: 2019Q2

REPORT INFORMATION
  Report Type: Spontaneous
  Country: US (occurrence: US)
  Receive Date: 20180808
  Receipt Date: 20190626
  Transmission Date: 20190711
  Serious: No
  Sender: FDA-Public Use
  Company Number: US-PFIZER INC-2016474168

PATIENT
  Age: 8 Year
  Sex: Male
  Weight: 28 kg

DRUGS (11)
  1. GENOTROPIN [Suspect]
     Active Substance: SOMATROPIN
     Dosage: UNK
  2. GENOTROPIN [Suspect]
     Active Substance: SOMATROPIN
     Dosage: 0.8 MG, UNK
  3. GENOTROPIN [Suspect]
     Active Substance: SOMATROPIN
     Dosage: 1.1, DAILY
     Dates: start: 20161011
  4. GENOTROPIN [Suspect]
     Active Substance: SOMATROPIN
     Dosage: UNK
  5. GENOTROPIN [Suspect]
     Active Substance: SOMATROPIN
     Dosage: UNK
  6. GENOTROPIN [Suspect]
     Active Substance: SOMATROPIN
     Dosage: 1.4 MG, 1X/DAY
     Dates: start: 201610
  7. GENOTROPIN [Suspect]
     Active Substance: SOMATROPIN
     Dosage: UNK
  8. GENOTROPIN [Suspect]
     Active Substance: SOMATROPIN
     Dosage: 1.1 MG, DAILY
     Dates: start: 201610
  9. GENOTROPIN [Suspect]
     Active Substance: SOMATROPIN
     Dosage: 1.4 MG, DAILY
     Dates: start: 20160903
  10. GENOTROPIN [Suspect]
     Active Substance: SOMATROPIN
     Dosage: 1.6 MG, 1X/DAY
     Dates: start: 201610
  11. GENOTROPIN [Suspect]
     Active Substance: SOMATROPIN
     Indication: GROWTH HORMONE DEFICIENCY
     Dosage: 1.1 MG, UNK
     Dates: start: 20160903

REACTIONS (10)
  - Blood glucose increased [Unknown]
  - Device issue [Not Recovered/Not Resolved]
  - Thyroxine free decreased [Unknown]
  - Pain in extremity [Recovering/Resolving]
  - Intentional device misuse [Not Recovered/Not Resolved]
  - Incorrect dose administered [Unknown]
  - Insulin-like growth factor decreased [Unknown]
  - Back pain [Recovering/Resolving]
  - Carbon dioxide decreased [Unknown]
  - Thyroxine decreased [Unknown]

NARRATIVE: CASE EVENT DATE: 20161008
